FAERS Safety Report 23859318 (Version 1)
Quarter: 2024Q2

REPORT INFORMATION
  Report Type: Spontaneous
  Country: US (occurrence: None)
  Receive Date: 20240515
  Receipt Date: 20240515
  Transmission Date: 20240715
  Serious: Yes (Life-Threatening, Disabling, Other)
  Sender: FDA-Public Use
  Company Number: None

PATIENT
  Age: 24 Year
  Sex: Female
  Weight: 157.5 kg

DRUGS (3)
  1. SYNTHROID [Suspect]
     Active Substance: LEVOTHYROXINE SODIUM
     Indication: Diabetes mellitus
     Route: 048
     Dates: start: 19970101, end: 20010101
  2. SYNTHROID [Suspect]
     Active Substance: LEVOTHYROXINE SODIUM
     Indication: Obesity
  3. SYNTHROID [Suspect]
     Active Substance: LEVOTHYROXINE SODIUM
     Indication: Lymphoedema

REACTIONS (4)
  - Aggression [None]
  - Haemorrhage [None]
  - Feeling abnormal [None]
  - Withdrawal syndrome [None]

NARRATIVE: CASE EVENT DATE: 20000414
